FAERS Safety Report 6516106-7 (Version None)
Quarter: 2009Q4

REPORT INFORMATION
  Report Type: 
  Country: None (occurrence: None)
  Receive Date: 20091223
  Receipt Date: 20091130
  Transmission Date: 20100525
  Serious: Yes (Other)
  Sender: FDA-Public Use
  Company Number: GB-PFIZER INC-2009249279

PATIENT
  Age: 23 Year
  Sex: Female

DRUGS (2)
  1. ZYVOX [Suspect]
  2. AMIKACIN [Concomitant]

REACTIONS (1)
  - OTOTOXICITY [None]
